FAERS Safety Report 14920275 (Version 1)
Quarter: 2018Q2

REPORT INFORMATION
  Report Type: Spontaneous
  Country: US (occurrence: US)
  Receive Date: 20180502
  Receipt Date: 20180502
  Transmission Date: 20180711
  Serious: Yes (Other)
  Sender: FDA-Public Use
  Company Number: None

PATIENT
  Age: 54 Year
  Sex: Female

DRUGS (2)
  1. OLMESARTAN/HCTZ [Suspect]
     Active Substance: HYDROCHLOROTHIAZIDE\OLMESARTAN MEDOXOMIL
     Indication: HYPERTENSION
     Dosage: 12.5/20 MG ONE DAILY, ORAL
     Route: 048
     Dates: start: 2013, end: 2018
  2. OLMESARTAN/HCTZ [Suspect]
     Active Substance: HYDROCHLOROTHIAZIDE\OLMESARTAN MEDOXOMIL
     Indication: HYPERLIPIDAEMIA
     Dosage: 12.5/20 MG ONE DAILY, ORAL
     Route: 048
     Dates: start: 2013, end: 2018

REACTIONS (3)
  - Dizziness [None]
  - Palpitations [None]
  - Abdominal discomfort [None]

NARRATIVE: CASE EVENT DATE: 20170714
